FAERS Safety Report 6381028-1 (Version None)
Quarter: 2009Q3

REPORT INFORMATION
  Report Type: 
  Country: None (occurrence: None)
  Receive Date: 20090929
  Receipt Date: 20090924
  Transmission Date: 20100115
  Serious: Yes (Life-Threatening)
  Sender: FDA-Public Use
  Company Number: US-MERCK-0909USA03164

PATIENT
  Age: 45 Year
  Sex: Female

DRUGS (6)
  1. EMEND [Suspect]
     Indication: PROPHYLAXIS OF NAUSEA AND VOMITING
     Route: 048
     Dates: start: 20090917, end: 20090917
  2. COMPAZINE [Concomitant]
     Route: 065
     Dates: start: 20090915
  3. CISPLATIN [Concomitant]
     Route: 065
     Dates: start: 20090915
  4. DEXAMETHASONE [Concomitant]
     Route: 065
     Dates: start: 20090922
  5. METHYLPREDNISOLONE [Concomitant]
     Route: 065
     Dates: start: 20090901, end: 20090902
  6. ATIVAN [Concomitant]
     Route: 065
     Dates: start: 20090915

REACTIONS (2)
  - CHEST DISCOMFORT [None]
  - DYSPNOEA [None]
